FAERS Safety Report 5841732-8 (Version None)
Quarter: 2008Q3

REPORT INFORMATION
  Report Type: 
  Country: None (occurrence: None)
  Receive Date: 20080731
  Receipt Date: 20080605
  Transmission Date: 20090109
  Serious: No
  Sender: FDA-Public Use
  Company Number: US200806001569

PATIENT
  Age: 64 Year
  Sex: Female
  Weight: 90.7 kg

DRUGS (8)
  1. BYETTA [Suspect]
     Indication: TYPE 2 DIABETES MELLITUS
     Dosage: 5 UG, 2/D, SUBCUTANEOUS
     Route: 058
     Dates: start: 20080201
  2. GLIPIZIDE [Concomitant]
  3. SYNTHROID [Concomitant]
  4. TRAMADOL HCL [Concomitant]
  5. MELOXICAM [Concomitant]
  6. COREG [Concomitant]
  7. DIOVAN HCT [Concomitant]
  8. ADVAIR DISKUS 100/50 [Concomitant]

REACTIONS (12)
  - ASTHENIA [None]
  - BLOOD GLUCOSE DECREASED [None]
  - BLOOD GLUCOSE INCREASED [None]
  - DYSPNOEA [None]
  - INJECTION SITE HAEMATOMA [None]
  - INJECTION SITE PAIN [None]
  - NASAL CONGESTION [None]
  - NAUSEA [None]
  - PRESYNCOPE [None]
  - UPPER RESPIRATORY TRACT INFECTION [None]
  - VISION BLURRED [None]
  - WEIGHT DECREASED [None]
